FAERS Safety Report 5819264-2 (Version None)
Quarter: 2008Q3

REPORT INFORMATION
  Report Type: 
  Country: None (occurrence: None)
  Receive Date: 20080723
  Receipt Date: 20080711
  Transmission Date: 20090109
  Serious: Yes (Hospitalization)
  Sender: FDA-Public Use
  Company Number: US-WYE-H04984508

PATIENT
  Sex: Female
  Weight: 59.93 kg

DRUGS (8)
  1. METHYLNALTREXONE BROMIDE [Suspect]
     Indication: CONSTIPATION
     Route: 058
     Dates: start: 20080710, end: 20080710
  2. LISINOPRIL AND HYDROCHLOROTHIAZIDE [Concomitant]
     Indication: HYPERTENSION
     Dosage: 40MG/25MG DAILY
     Route: 048
     Dates: start: 20070101
  3. BISACODYL [Concomitant]
     Indication: CONSTIPATION
     Dosage: UNSPECIFIED
     Route: 065
     Dates: start: 20080627, end: 20080703
  4. CLONIDINE [Concomitant]
     Indication: HYPERTENSION
     Route: 065
     Dates: start: 20070101
  5. FLEXERIL [Concomitant]
     Indication: NECROTISING FASCIITIS
     Dosage: 10 MG EVERY 8 HOURS WHENEVER NECESSARY
     Route: 048
     Dates: start: 20080501
  6. CLONAZEPAM [Concomitant]
     Indication: ANXIETY
     Dosage: 0.5 MG EVERY 12 HOURS WHENEVER NECESSARY
     Route: 048
     Dates: start: 20070101
  7. METHADONE HCL [Concomitant]
     Indication: NECROTISING FASCIITIS
     Dosage: 30 MG IN A.M. AND 20 MG IN P.M.
     Route: 048
     Dates: start: 20071201
  8. METOPROLOL TARTRATE [Concomitant]
     Indication: HYPERTENSION
     Route: 048
     Dates: start: 20070101

REACTIONS (1)
  - EXTRASYSTOLES [None]
